FAERS Safety Report 9068970 (Version 1)
Quarter: 2013Q1

REPORT INFORMATION
  Report Type: Spontaneous
  Country: CA (occurrence: CA)
  Receive Date: 20130215
  Receipt Date: 20130215
  Transmission Date: 20140127
  Serious: Yes (Death)
  Sender: FDA-Public Use
  Company Number: CA-INCYTE CORPORATION-2013IN000281

PATIENT
  Age: 86 None
  Sex: Male

DRUGS (1)
  1. JAKAVI [Suspect]
     Route: 048

REACTIONS (1)
  - Death [Fatal]
